FAERS Safety Report 11315849 (Version 3)
Quarter: 2015Q3

REPORT INFORMATION
  Report Type: Spontaneous
  Country: US (occurrence: None)
  Receive Date: 20150724
  Receipt Date: 20150831
  Transmission Date: 20151125
  Serious: Yes (Hospitalization)
  Sender: FDA-Public Use
  Company Number: 2015SMT00196

PATIENT
  Age: 61 Year
  Sex: Female
  Weight: 123.4 kg

DRUGS (7)
  1. ACIDOPHILUS (DIETAR SUPPLEMENT) [Concomitant]
  2. REGRANEX [Suspect]
     Active Substance: BECAPLERMIN
     Indication: WOUND
     Dosage: ONGOING
     Dates: start: 2015
  3. ANTIVERT (MECLIZINE) [Concomitant]
  4. ^BABY ASA^ (ACETYLSALICYLIC ACID) [Concomitant]
  5. UNSPECIFIED VITAMINS (DIETARY SUPPLEMENT) [Concomitant]
  6. UNSPECIFIED IRON PILLS (DIETARY SUPPLEMENT) [Concomitant]
  7. DILTIAZEM [Concomitant]
     Active Substance: DILTIAZEM

REACTIONS (12)
  - Acute kidney injury [None]
  - Sepsis syndrome [None]
  - Application site infection [None]
  - Osteomyelitis [None]
  - Diabetic foot infection [None]
  - Chronic kidney disease [None]
  - Stasis dermatitis [None]
  - Neuropathy peripheral [None]
  - Infection [None]
  - Off label use [None]
  - Anaemia [None]
  - Hypertension [None]
